FAERS Safety Report 15133019 (Version 1)
Quarter: 2018Q3

REPORT INFORMATION
  Report Type: Spontaneous
  Country: ES (occurrence: ES)
  Receive Date: 20180712
  Receipt Date: 20180712
  Transmission Date: 20181010
  Serious: Yes (Hospitalization)
  Sender: FDA-Public Use
  Company Number: ES-CONCORDIA PHARMACEUTICALS INC.-E2B_00013284

PATIENT
  Age: 74 Year
  Sex: Male

DRUGS (5)
  1. BRILIQUE [Suspect]
     Active Substance: TICAGRELOR
     Indication: ACUTE MYOCARDIAL INFARCTION
     Route: 048
     Dates: start: 20180312
  2. ADIRO [Suspect]
     Active Substance: ASPIRIN
     Indication: ACUTE MYOCARDIAL INFARCTION
     Route: 048
     Dates: start: 20180312
  3. ATORVASTAINA [Suspect]
     Active Substance: ATORVASTATIN CALCIUM
     Indication: ACUTE MYOCARDIAL INFARCTION
     Route: 048
     Dates: start: 20180312, end: 20180615
  4. SYRON (FERRIMANNITOL OVALBUMIN) [Suspect]
     Active Substance: FERRIC OXIDE RED
     Indication: ANAEMIA
     Route: 048
     Dates: start: 20180427
  5. ZONISAMIDE. [Suspect]
     Active Substance: ZONISAMIDE
     Indication: TREMOR
     Route: 048
     Dates: start: 20160316

REACTIONS (1)
  - Hepatitis toxic [Recovering/Resolving]

NARRATIVE: CASE EVENT DATE: 20180617
